FAERS Safety Report 19885416 (Version 2)
Quarter: 2021Q4

REPORT INFORMATION
  Report Type: Spontaneous
  Country: US (occurrence: US)
  Receive Date: 20210927
  Receipt Date: 20211222
  Transmission Date: 20220303
  Serious: Yes (Hospitalization, Other)
  Sender: FDA-Public Use
  Company Number: US-BRISTOL-MYERS SQUIBB COMPANY-BMS-2021-093276

PATIENT
  Age: 79 Year
  Sex: Female

DRUGS (5)
  1. SPRYCEL [Suspect]
     Active Substance: DASATINIB
     Indication: Chronic myeloid leukaemia
     Dosage: 100 MILLIGRAM, QD
     Route: 048
     Dates: start: 20140926, end: 20190102
  2. SPRYCEL [Suspect]
     Active Substance: DASATINIB
     Dosage: 50 MILLIGRAM, QD
     Route: 048
     Dates: start: 20190319, end: 20191003
  3. SPRYCEL [Suspect]
     Active Substance: DASATINIB
     Dosage: 40 MILLIGRAM, QD
     Route: 048
     Dates: start: 20191003, end: 20191226
  4. SPRYCEL [Suspect]
     Active Substance: DASATINIB
     Dosage: 20 MILLIGRAM, QD
     Route: 048
     Dates: start: 20200326, end: 20201102
  5. SPRYCEL [Suspect]
     Active Substance: DASATINIB
     Dosage: 20 MILLIGRAM, QD
     Route: 048
     Dates: start: 20210507, end: 20211119

REACTIONS (22)
  - Stress cardiomyopathy [Unknown]
  - Acute myocardial infarction [Unknown]
  - Pulmonary arterial hypertension [Unknown]
  - Pleural effusion [Recovered/Resolved]
  - Haemorrhage [Unknown]
  - Hemiparesis [Unknown]
  - Pericardial effusion [Unknown]
  - Arthropathy [Unknown]
  - Diplopia [Recovering/Resolving]
  - Atrioventricular block [Unknown]
  - Electrocardiogram PR prolongation [Recovered/Resolved]
  - Anxiety [Unknown]
  - Depression [Unknown]
  - Headache [Unknown]
  - Dilatation atrial [Unknown]
  - Osteoarthritis [Unknown]
  - Tendon rupture [Unknown]
  - Spinal osteoarthritis [Unknown]
  - Pain [Unknown]
  - Ophthalmic migraine [Unknown]
  - Cystitis [Unknown]
  - Seborrhoeic keratosis [Unknown]

NARRATIVE: CASE EVENT DATE: 20170406
